FAERS Safety Report 4486145-9 (Version None)
Quarter: 2004Q4

REPORT INFORMATION
  Report Type: 
  Country: None (occurrence: None)
  Receive Date: 20041026
  Receipt Date: 20041007
  Transmission Date: 20050328
  Serious: Yes (Hospitalization)
  Sender: FDA-Public Use
  Company Number: US-MERCK-0410USA01179

PATIENT
  Age: 78 Year
  Sex: Female

DRUGS (5)
  1. ZOCOR [Concomitant]
     Route: 048
  2. VIOXX [Suspect]
     Indication: ARTHRALGIA
     Route: 048
     Dates: start: 20030401
  3. ZYRTEC [Concomitant]
     Route: 065
  4. VASOTEC [Concomitant]
     Route: 065
  5. ACTONEL [Concomitant]
     Route: 065

REACTIONS (3)
  - ADVERSE EVENT [None]
  - ATRIAL FIBRILLATION [None]
  - DYSPNOEA [None]
